FAERS Safety Report 15403916 (Version 4)
Quarter: 2019Q1

REPORT INFORMATION
  Report Type: Spontaneous
  Country: BG (occurrence: BG)
  Receive Date: 20180919
  Receipt Date: 20190318
  Transmission Date: 20190417
  Serious: Yes (Death, Other)
  Sender: FDA-Public Use
  Company Number: BG-MYLANLABS-2018M1068667

PATIENT
  Age: 2 Year
  Sex: Female

DRUGS (5)
  1. MANNITOL. [Suspect]
     Active Substance: MANNITOL
     Indication: INFLUENZA
     Dosage: UNK
     Route: 065
  2. OSELTAMIVIR [Suspect]
     Active Substance: OSELTAMIVIR
     Indication: INFLUENZA
     Dosage: UNK
     Route: 065
  3. DEXAMETHASONE. [Suspect]
     Active Substance: DEXAMETHASONE
     Indication: INFLUENZA
     Dosage: 2 MILLIGRAM/KILOGRAM, QD
     Route: 065
  4. FURANTHRIL [Suspect]
     Active Substance: FUROSEMIDE
     Indication: INFLUENZA
     Dosage: UNK
     Route: 065
  5. ACICLOVIR [Suspect]
     Active Substance: ACYCLOVIR
     Indication: INFLUENZA
     Dosage: UNK
     Route: 065

REACTIONS (2)
  - Product use in unapproved indication [Fatal]
  - Coma [Fatal]

NARRATIVE: CASE EVENT DATE: 2016
